FAERS Safety Report 8967947 (Version 1)
Quarter: 2012Q4

REPORT INFORMATION
  Report Type: Report from Study
  Country: DE (occurrence: DE)
  Receive Date: 20121217
  Receipt Date: 20121217
  Transmission Date: 20130627
  Serious: Yes (Hospitalization)
  Sender: FDA-Public Use
  Company Number: DE-BAXTER-2012BAX026900

PATIENT
  Age: 68 Year
  Sex: Female
  Weight: 98 kg

DRUGS (5)
  1. ENDOXAN 1G [Suspect]
     Indication: NODULAR (FOLLICULAR) LYMPHOMA
     Route: 042
     Dates: start: 20100825
  2. RITUXIMAB [Suspect]
     Indication: NODULAR (FOLLICULAR) LYMPHOMA
     Route: 042
     Dates: start: 20100824
  3. DOXORUBICINE [Suspect]
     Indication: NODULAR (FOLLICULAR) LYMPHOMA
     Route: 042
     Dates: start: 20100825
  4. VINCRISTINE [Suspect]
     Indication: NODULAR (FOLLICULAR) LYMPHOMA
     Route: 042
     Dates: start: 20100825
  5. PREDNISONE [Suspect]
     Indication: NODULAR (FOLLICULAR) LYMPHOMA
     Route: 048
     Dates: start: 20100825

REACTIONS (1)
  - General physical health deterioration [Recovered/Resolved]
